FAERS Safety Report 8289939-7 (Version None)
Quarter: 2012Q2

REPORT INFORMATION
  Report Type: 
  Country: None (occurrence: None)
  Receive Date: 20120417
  Receipt Date: 20120413
  Transmission Date: 20120825
  Serious: No
  Sender: FDA-Public Use
  Company Number: US-TEVA-333626USA

PATIENT
  Sex: Female

DRUGS (3)
  1. PLAN B ONE-STEP [Suspect]
     Indication: POST COITAL CONTRACEPTION
     Dosage: 1.5 MILLIGRAM;
     Route: 048
     Dates: start: 20120312, end: 20120312
  2. LOESTRIN 1.5/30 [Concomitant]
     Indication: CONTRACEPTION
     Route: 048
     Dates: start: 20120301
  3. SPIRONOLACTONE [Concomitant]
     Indication: HORMONE LEVEL ABNORMAL
     Route: 048

REACTIONS (1)
  - MENSTRUATION IRREGULAR [None]
